FAERS Safety Report 25509774 (Version 1)
Quarter: 2025Q3

REPORT INFORMATION
  Report Type: Spontaneous
  Country: IL (occurrence: IL)
  Receive Date: 20250703
  Receipt Date: 20250703
  Transmission Date: 20251020
  Serious: Yes (Hospitalization, Other)
  Sender: UCB
  Company Number: IL-GLAXOSMITHKLINE-IL2022EME129052

PATIENT
  Sex: Female

DRUGS (1)
  1. KEPPRA [Suspect]
     Active Substance: LEVETIRACETAM
     Indication: Tubulointerstitial nephritis
     Dates: start: 20220128

REACTIONS (1)
  - Tubulointerstitial nephritis [Unknown]
